FAERS Safety Report 4965889-6 (Version None)
Quarter: 2006Q2

REPORT INFORMATION
  Report Type: 
  Country: None (occurrence: None)
  Receive Date: 20060407
  Receipt Date: 20060315
  Transmission Date: 20061013
  Serious: Yes (Other)
  Sender: FDA-Public Use
  Company Number: PHFR2006GB01162

PATIENT
  Age: 25 Year
  Sex: Female

DRUGS (3)
  1. LAMISIL [Suspect]
     Indication: ONYCHOMYCOSIS
     Dosage: 250 MG, QD
     Route: 048
     Dates: start: 20051001
  2. MARVELON [Suspect]
     Indication: CONTRACEPTION
     Dosage: UNK, UNK
     Route: 048
     Dates: start: 20051001, end: 20060202
  3. YASMIN [Suspect]
     Indication: CONTRACEPTION
     Route: 048
     Dates: start: 20060202, end: 20060313

REACTIONS (1)
  - METRORRHAGIA [None]
